FAERS Safety Report 4762609-5 (Version None)
Quarter: 2005Q3

REPORT INFORMATION
  Report Type: 
  Country: None (occurrence: None)
  Receive Date: 20050907
  Receipt Date: 20001124
  Transmission Date: 20060218
  Serious: Yes (Hospitalization)
  Sender: FDA-Public Use
  Company Number: FR-GLAXOSMITHKLINE-B0094371B

PATIENT
  Age: 27 Day
  Sex: Female
  Weight: 1.3 kg

DRUGS (6)
  1. ZIDOVUDINE [Suspect]
     Indication: ANTIVIRAL PROPHYLAXIS
     Route: 042
     Dates: end: 20000617
  2. ZIDOVUDINE [Suspect]
     Indication: HIV INFECTION
     Route: 048
     Dates: start: 20000618, end: 20000704
  3. ZIDOVUDINE [Suspect]
     Route: 048
  4. COMBIVIR [Suspect]
     Indication: HIV INFECTION
     Route: 048
  5. NEVIRAPINE [Suspect]
     Route: 048
  6. MEDIALIPIDE [Suspect]
     Route: 042
     Dates: start: 20000618, end: 20000703

REACTIONS (12)
  - ANAEMIA MACROCYTIC [None]
  - BLOOD KETONE BODY INCREASED [None]
  - BLOOD LACTIC ACID INCREASED [None]
  - CHYLOMICRONS [None]
  - GROWTH RETARDATION [None]
  - HEPATOMEGALY [None]
  - HYPERTONIA [None]
  - HYPERTRIGLYCERIDAEMIA [None]
  - LABORATORY TEST ABNORMAL [None]
  - METABOLIC DISORDER [None]
  - METABOLIC FUNCTION TEST [None]
  - NEUTROPENIA [None]
